FAERS Safety Report 8414495-X (Version None)
Quarter: 2012Q2

REPORT INFORMATION
  Report Type: 
  Country: None (occurrence: None)
  Receive Date: 20120605
  Receipt Date: 20120601
  Transmission Date: 20120825
  Serious: No
  Sender: FDA-Public Use
  Company Number: US-PFIZER INC-2012087484

PATIENT
  Sex: Female

DRUGS (6)
  1. THEOPHYLLINE [Suspect]
     Dosage: UNK
  2. ADVAIR DISKUS 100/50 [Suspect]
     Dosage: UNK
  3. PLAVIX [Suspect]
     Dosage: UNK
  4. ACETYLSALICYLIC ACID SRT [Suspect]
     Dosage: UNK
  5. TETRACYCLINE HCL [Suspect]
     Dosage: UNK
  6. PENICILLIN G PROCAINE [Suspect]
     Dosage: UNK

REACTIONS (1)
  - NO ADVERSE EVENT [None]
